FAERS Safety Report 19565100 (Version 3)
Quarter: 2021Q4

REPORT INFORMATION
  Report Type: Report from Study
  Country: PR (occurrence: PR)
  Receive Date: 20210716
  Receipt Date: 20211005
  Transmission Date: 20220303
  Serious: Yes (Hospitalization)
  Sender: FDA-Public Use
  Company Number: PR-JNJFOC-20210723369

PATIENT
  Age: 39 Year
  Sex: Male

DRUGS (4)
  1. SPRAVATO [Suspect]
     Active Substance: ESKETAMINE
     Indication: Depression
     Dates: start: 20210706, end: 20210706
  2. XANAX [Suspect]
     Active Substance: ALPRAZOLAM
     Indication: Anxiety
     Route: 048
     Dates: end: 202107
  3. VIIBRYD [Concomitant]
     Active Substance: VILAZODONE HYDROCHLORIDE
     Indication: Antidepressant therapy
  4. LAMICTAL [Concomitant]
     Active Substance: LAMOTRIGINE
     Indication: Antidepressant therapy

REACTIONS (4)
  - Seizure [Recovered/Resolved]
  - Fall [Recovered/Resolved]
  - Head injury [Recovered/Resolved]
  - Sedation [Recovered/Resolved]

NARRATIVE: CASE EVENT DATE: 20210706
